FAERS Safety Report 9462235 (Version 1)
Quarter: 2013Q3

REPORT INFORMATION
  Report Type: Spontaneous
  Country: US (occurrence: US)
  Receive Date: 20130816
  Receipt Date: 20130816
  Transmission Date: 20140515
  Serious: Yes (Other)
  Sender: FDA-Public Use
  Company Number: US-PFIZER INC-2013236554

PATIENT
  Sex: Male

DRUGS (1)
  1. PRISTIQ [Suspect]
     Dosage: UNK
     Dates: start: 20130812

REACTIONS (6)
  - Hallucination [Unknown]
  - Confusional state [Unknown]
  - Hypertension [Unknown]
  - Heart rate increased [Unknown]
  - Mydriasis [Unknown]
  - Dysarthria [Unknown]
